FAERS Safety Report 12708749 (Version 2)
Quarter: 2016Q3

REPORT INFORMATION
  Report Type: Spontaneous
  Country: DE (occurrence: DE)
  Receive Date: 20160901
  Receipt Date: 20160909
  Transmission Date: 20161109
  Serious: Yes (Other)
  Sender: FDA-Public Use
  Company Number: DE-SA-2016SA149475

PATIENT
  Sex: Male
  Weight: 90 kg

DRUGS (7)
  1. APIDRA SOLOSTAR [Suspect]
     Active Substance: INSULIN GLULISINE
     Dosage: ROUTE: INJECTION NOS
  2. BISOPROLOL [Concomitant]
     Active Substance: BISOPROLOL
     Route: 048
  3. SOLOSTAR [Concomitant]
     Active Substance: DEVICE
  4. COAPROVEL [Concomitant]
     Active Substance: HYDROCHLOROTHIAZIDE\IRBESARTAN
     Indication: HYPERTENSION
     Route: 048
  5. NOVAMINSULFON [Concomitant]
     Active Substance: METAMIZOLE
     Indication: ANALGESIC THERAPY
     Route: 048
  6. FALITHROM [Concomitant]
     Active Substance: PHENPROCOUMON
     Indication: EMBOLISM ARTERIAL
     Route: 048
  7. PRAVASTATIN. [Concomitant]
     Active Substance: PRAVASTATIN
     Route: 048

REACTIONS (1)
  - Injection site necrosis [Unknown]
